FAERS Safety Report 6094239-X (Version None)
Quarter: 2009Q1

REPORT INFORMATION
  Report Type: 
  Country: None (occurrence: None)
  Receive Date: 20090225
  Receipt Date: 20090225
  Transmission Date: 20090719
  Serious: No
  Sender: FDA-Public Use
  Company Number: None

PATIENT
  Age: 45 Year
  Sex: Female
  Weight: 81.6475 kg

DRUGS (1)
  1. SINGULAIR [Suspect]
     Indication: ASTHMA
     Dosage: 10MG ONE ADAY PO
     Route: 048
     Dates: start: 20080911, end: 20090224

REACTIONS (3)
  - HYPOAESTHESIA [None]
  - INSOMNIA [None]
  - PERIPHERAL COLDNESS [None]
